FAERS Safety Report 13816986 (Version 2)
Quarter: 2017Q4

REPORT INFORMATION
  Report Type: Spontaneous
  Country: US (occurrence: US)
  Receive Date: 20170731
  Receipt Date: 20171101
  Transmission Date: 20180320
  Serious: Yes (Other)
  Sender: FDA-Public Use
  Company Number: US-JNJFOC-20170615164

PATIENT
  Age: 61 Year
  Sex: Male
  Weight: 113.49 kg

DRUGS (12)
  1. PREZCOBIX [Suspect]
     Active Substance: COBICISTAT\DARUNAVIR ETHANOLATE
     Indication: HIV INFECTION
     Route: 048
     Dates: start: 201704, end: 20170606
  2. FLUCONAZOLE. [Concomitant]
     Active Substance: FLUCONAZOLE
     Route: 048
  3. EMTRICITABINE W/TENOFOVIR [Suspect]
     Active Substance: EMTRICITABINE\TENOFOVIR DISOPROXIL
     Indication: PRODUCT USED FOR UNKNOWN INDICATION
     Route: 065
  4. EDURANT [Concomitant]
     Active Substance: RILPIVIRINE HYDROCHLORIDE
     Route: 048
  5. EMTRIVA [Concomitant]
     Active Substance: EMTRICITABINE
     Route: 048
  6. FLUTICASONE PROPIONATE. [Concomitant]
     Active Substance: FLUTICASONE PROPIONATE
     Route: 045
  7. METHOCARBAMOL. [Concomitant]
     Active Substance: METHOCARBAMOL
     Dosage: THREE TIMES A DAY
     Route: 048
  8. HYDRALAZINE HCL [Concomitant]
     Active Substance: HYDRALAZINE HYDROCHLORIDE
     Route: 048
  9. ASPIRIN. [Concomitant]
     Active Substance: ASPIRIN
     Route: 048
  10. AMLODIPINE BESYLATE. [Concomitant]
     Active Substance: AMLODIPINE BESYLATE
     Route: 048
  11. NOVOLIN N [Concomitant]
     Active Substance: INSULIN HUMAN
     Dosage: 30 UNITS EVENRY MORNING
     Route: 058
  12. INSULINA NPH [Concomitant]
     Active Substance: INSULIN HUMAN
     Dosage: 30 UNITS
     Route: 058

REACTIONS (1)
  - Rash pustular [Recovered/Resolved]

NARRATIVE: CASE EVENT DATE: 20170530
